FAERS Safety Report 7530553-6 (Version None)
Quarter: 2011Q2

REPORT INFORMATION
  Report Type: 
  Country: None (occurrence: None)
  Receive Date: 20110607
  Receipt Date: 20110525
  Transmission Date: 20111010
  Serious: Yes (Hospitalization)
  Sender: FDA-Public Use
  Company Number: JP-UCBSA-014653

PATIENT
  Sex: Female

DRUGS (25)
  1. MILNACIPRAN HYDROCHLORIDE [Concomitant]
     Dates: start: 20061221
  2. BERAPROST SODIUM [Concomitant]
     Dates: start: 20080213
  3. CIMZIA [Suspect]
     Dosage: C870-041
     Route: 058
     Dates: start: 20090101, end: 20091015
  4. CIMZIA [Suspect]
     Route: 058
     Dates: start: 20091029
  5. SOFALCONE [Concomitant]
     Dates: start: 20100415
  6. IMIDAPRIL HYDROCHLORIDE [Concomitant]
     Dates: start: 20090806
  7. CARBAMAZEPINE [Concomitant]
     Dates: start: 20070201
  8. ETIZOLAM [Concomitant]
     Dates: start: 20070201
  9. METHOTREXATE [Concomitant]
     Dosage: 8MG(4MG-2MG-2MG)/WEEK
     Dates: start: 20081222
  10. ATORVASTATIN CALCIUM [Concomitant]
     Dates: start: 20060406
  11. LITHIUM CARBONATE [Concomitant]
     Dates: start: 20080507
  12. KETOPROFEN [Concomitant]
     Dosage: QS
     Dates: start: 20090325
  13. CIMZIA [Suspect]
     Indication: RHEUMATOID ARTHRITIS
     Dosage: C870-041
     Route: 058
     Dates: start: 20090416, end: 20090101
  14. SERTRALINE HYDROCHLORIDE [Concomitant]
     Dates: start: 20071121
  15. SENNOSIDE [Concomitant]
     Dates: start: 20100527
  16. LANSOPRAZOLE [Concomitant]
     Dates: start: 20070129
  17. AN EXTRACT OBTAINED FROM INFLAMMATORY RABBIT SKIN INOCULA [Concomitant]
     Dosage: 3 TABLETS DAILY
     Dates: start: 20080806
  18. TRIAZOLAM [Concomitant]
     Dates: start: 20070221
  19. MELOXICAM [Concomitant]
     Dates: start: 20080806
  20. SULPIRIDE [Concomitant]
     Dates: start: 20061221
  21. FERROUS SULFATE TAB [Concomitant]
     Dates: start: 20090820
  22. MECOBALAMIN [Concomitant]
     Dates: start: 20060614
  23. KETOPROFEN [Concomitant]
     Dosage: QS
     Dates: start: 20090423
  24. KETOPROFEN [Concomitant]
     Dosage: QS
     Dates: start: 20080806
  25. FOLIC ACID [Concomitant]
     Dates: start: 20081224

REACTIONS (2)
  - DEMENTIA [None]
  - RHEUMATOID ARTHRITIS [None]
